FAERS Safety Report 22614419 (Version 1)
Quarter: 2023Q2

REPORT INFORMATION
  Report Type: Spontaneous
  Country: JP (occurrence: JP)
  Receive Date: 20230619
  Receipt Date: 20230619
  Transmission Date: 20230722
  Serious: Yes (Other)
  Sender: FDA-Public Use
  Company Number: JP-STRIDES ARCOLAB LIMITED-2023SP009580

PATIENT
  Age: 44 Year
  Sex: Male

DRUGS (12)
  1. PREDNISOLONE [Suspect]
     Active Substance: PREDNISOLONE
     Indication: Immune thrombocytopenia
     Dosage: 10 MILLIGRAM / DAY (DAILY) (WITH A TAPERING SCHEDULE)
     Route: 048
  2. PREDNISOLONE [Suspect]
     Active Substance: PREDNISOLONE
     Indication: Hyperchylomicronaemia
     Dosage: 15 MILLIGRAM/DAY (DAILY)
     Route: 048
  3. PREDNISOLONE [Suspect]
     Active Substance: PREDNISOLONE
     Dosage: 9 MILLIGRAM/DAY (DAILY)
     Route: 048
  4. PREDNISOLONE [Suspect]
     Active Substance: PREDNISOLONE
     Dosage: 8 MILLIGRAM/DAY (DAILY)
     Route: 048
  5. PREDNISOLONE [Suspect]
     Active Substance: PREDNISOLONE
     Dosage: 7 MILLIGRAM/DAY (DAILY)
     Route: 048
  6. PREDNISOLONE [Suspect]
     Active Substance: PREDNISOLONE
     Dosage: 10 MILLIGRAM / DAY (DAILY)
     Route: 048
  7. PREDNISOLONE [Suspect]
     Active Substance: PREDNISOLONE
     Dosage: 9 MILLIGRAM/DAY (DAILY)
     Route: 048
  8. ELTROMBOPAG [Suspect]
     Active Substance: ELTROMBOPAG
     Indication: Immune thrombocytopenia
     Dosage: 25 MILLIGRAM/DAY (DAILY)
     Route: 048
  9. ELTROMBOPAG [Suspect]
     Active Substance: ELTROMBOPAG
     Indication: Hyperchylomicronaemia
     Dosage: 50 MILLIGRAM/DAY (DAILY)
     Route: 048
  10. ELTROMBOPAG [Suspect]
     Active Substance: ELTROMBOPAG
     Dosage: 37.5 MILLIGRAM/DAY (DAILY)
     Route: 048
  11. ELTROMBOPAG [Suspect]
     Active Substance: ELTROMBOPAG
     Dosage: 25 MILLIGRAM/DAY (DAILY)
     Route: 048
  12. ELTROMBOPAG [Suspect]
     Active Substance: ELTROMBOPAG
     Dosage: 50 MILLIGRAM/DAY (DAILY)
     Route: 048

REACTIONS (3)
  - Acute myocardial infarction [Unknown]
  - Coronary artery occlusion [Unknown]
  - Decreased immune responsiveness [Unknown]
